FAERS Safety Report 6432952-2 (Version None)
Quarter: 2009Q4

REPORT INFORMATION
  Report Type: 
  Country: None (occurrence: None)
  Receive Date: 20091109
  Receipt Date: 20091105
  Transmission Date: 20100525
  Serious: Yes (Hospitalization)
  Sender: FDA-Public Use
  Company Number: US-BRISTOL-MYERS SQUIBB COMPANY-14844716

PATIENT
  Age: 64 Year
  Sex: Female
  Weight: 63 kg

DRUGS (1)
  1. ORENCIA [Suspect]
     Indication: RHEUMATOID ARTHRITIS
     Dosage: INFUSIONS ON 4/13/09, 4/27/09, 5/26/09, 6/22/09, 7/09 AND 8/09
     Dates: start: 20090330

REACTIONS (1)
  - HAEMORRHAGIC STROKE [None]
